FAERS Safety Report 20216416 (Version 1)
Quarter: 2021Q4

REPORT INFORMATION
  Report Type: Spontaneous
  Country: US (occurrence: US)
  Receive Date: 20211222
  Receipt Date: 20211222
  Transmission Date: 20220303
  Serious: Yes (Hospitalization)
  Sender: FDA-Public Use
  Company Number: US-NOVARTISPH-NVSC2021US289284

PATIENT
  Sex: Male

DRUGS (4)
  1. EVEROLIMUS [Suspect]
     Active Substance: EVEROLIMUS
     Indication: Product used for unknown indication
     Dosage: UNK
     Route: 065
     Dates: end: 2021
  2. LENVIMA [Suspect]
     Active Substance: LENVATINIB
     Indication: Product used for unknown indication
     Dosage: 10 MG, QD
     Route: 048
     Dates: end: 20211027
  3. LENVIMA [Suspect]
     Active Substance: LENVATINIB
     Dosage: 10 MG  (TWO DAYS ON, ONE DAY OFF)
     Route: 048
     Dates: start: 2021, end: 2021
  4. LENVIMA [Suspect]
     Active Substance: LENVATINIB
     Dosage: 10 MG, QD
     Route: 048
     Dates: start: 2021, end: 2021

REACTIONS (2)
  - Pleural effusion [Unknown]
  - Cough [Unknown]

NARRATIVE: CASE EVENT DATE: 20210101
